FAERS Safety Report 19066186 (Version 1)
Quarter: 2021Q1

REPORT INFORMATION
  Report Type: Spontaneous
  Country: IN (occurrence: IN)
  Receive Date: 20210327
  Receipt Date: 20210327
  Transmission Date: 20210420
  Serious: Yes (Other)
  Sender: FDA-Public Use
  Company Number: NVSC2021IN064252

PATIENT
  Age: 54 Year
  Sex: Female

DRUGS (5)
  1. UDILIV [Concomitant]
     Active Substance: URSODIOL
     Indication: PRODUCT USED FOR UNKNOWN INDICATION
     Dosage: 1 TABLET, BID
     Route: 065
     Dates: start: 20210215
  2. LETROZOLE. [Suspect]
     Active Substance: LETROZOLE
     Indication: BREAST CANCER
     Dosage: UNK
     Route: 065
  3. PREGABA [Concomitant]
     Active Substance: PREGABALIN
     Indication: PRODUCT USED FOR UNKNOWN INDICATION
     Dosage: UNK, QD, (ONCE BEFORE BED)
     Route: 065
     Dates: start: 20210215
  4. FULVESTRANTUM [Suspect]
     Active Substance: FULVESTRANT
     Dosage: TABLET 125 MG, QD, FOR 21 DAYS, THEN GAP OF 7 DAYS
     Route: 065
  5. FULVESTRANTUM [Suspect]
     Active Substance: FULVESTRANT
     Indication: BREAST CANCER
     Dosage: 500 MG, QMO
     Route: 030

REACTIONS (4)
  - Metastases to bone [Unknown]
  - Abdominal pain [Unknown]
  - Back pain [Unknown]
  - Metastases to liver [Unknown]

NARRATIVE: CASE EVENT DATE: 202010
